FAERS Safety Report 22186876 (Version 1)
Quarter: 2023Q2

REPORT INFORMATION
  Report Type: Spontaneous
  Country: US (occurrence: US)
  Receive Date: 20230407
  Receipt Date: 20230407
  Transmission Date: 20230722
  Serious: Yes (Death, Other)
  Sender: FDA-Public Use
  Company Number: US-PFIZER INC-PV202300064379

PATIENT
  Age: 62 Year
  Sex: Female

DRUGS (1)
  1. IBRANCE [Suspect]
     Active Substance: PALBOCICLIB
     Dosage: DAILY ON DAYS 1-21 AS DIRECTED OF EACH 28 DAY CYCLE. TAKE WHOLE WITH WATER, WITH OR WITHOUT FOOD)
     Route: 048

REACTIONS (1)
  - Death [Fatal]
